FAERS Safety Report 18632952 (Version 1)
Quarter: 2020Q4

REPORT INFORMATION
  Report Type: Spontaneous
  Country: ES (occurrence: ES)
  Receive Date: 20201218
  Receipt Date: 20201218
  Transmission Date: 20210114
  Serious: Yes (Other)
  Sender: FDA-Public Use
  Company Number: ES-TAKEDA-2020TUS056755

PATIENT
  Age: 59 Year
  Sex: Male

DRUGS (2)
  1. HUMAN NORMAL IMMUNOGLOBULIN [Suspect]
     Active Substance: HUMAN IMMUNOGLOBULIN G
     Indication: GUILLAIN-BARRE SYNDROME
     Dosage: 0.4 PER KG, QD, 5 BOLUS DOSES
     Route: 065
  2. HUMAN NORMAL IMMUNOGLOBULIN [Suspect]
     Active Substance: HUMAN IMMUNOGLOBULIN G
     Dosage: UNK
     Route: 065

REACTIONS (2)
  - Hyponatraemia [Recovered/Resolved]
  - Therapeutic product effect incomplete [Recovered/Resolved with Sequelae]
